FAERS Safety Report 4638221-5 (Version None)
Quarter: 2005Q2

REPORT INFORMATION
  Report Type: 
  Country: None (occurrence: None)
  Receive Date: 20050418
  Receipt Date: 20050323
  Transmission Date: 20051028
  Serious: No
  Sender: FDA-Public Use
  Company Number: USA050290341

PATIENT
  Age: 8 Year
  Sex: Female
  Weight: 42 kg

DRUGS (2)
  1. STRATTERA [Suspect]
     Indication: ATTENTION DEFICIT/HYPERACTIVITY DISORDER
     Dosage: 50 MG DAY
     Dates: start: 20030408, end: 20050114
  2. CONCERTA        (METHLYPHENIDATE HYDROCHLORIDE) [Concomitant]

REACTIONS (2)
  - ALANINE AMINOTRANSFERASE INCREASED [None]
  - ASPARTATE AMINOTRANSFERASE INCREASED [None]
